FAERS Safety Report 14210835 (Version 1)
Quarter: 2017Q4

REPORT INFORMATION
  Report Type: Spontaneous
  Country: US (occurrence: US)
  Receive Date: 20171121
  Receipt Date: 20171121
  Transmission Date: 20180321
  Serious: No
  Sender: FDA-Public Use
  Company Number: US-BAUSCH-BL-2017-007721

PATIENT
  Age: 65 Year
  Sex: Female
  Weight: 56.3 kg

DRUGS (4)
  1. LOTEMAX [Suspect]
     Active Substance: LOTEPREDNOL ETABONATE
     Indication: EYE INFLAMMATION
     Route: 061
     Dates: start: 201610
  2. LOTEMAX [Suspect]
     Active Substance: LOTEPREDNOL ETABONATE
     Route: 061
     Dates: start: 201612
  3. LOTEMAX [Suspect]
     Active Substance: LOTEPREDNOL ETABONATE
     Dosage: IN BOTH EYES
     Route: 061
     Dates: start: 201702, end: 20170320
  4. DUREZOL [Suspect]
     Active Substance: DIFLUPREDNATE
     Indication: EYE INFLAMMATION
     Route: 065
     Dates: start: 201702, end: 20170320

REACTIONS (6)
  - Inflammation [Recovering/Resolving]
  - Glare [Unknown]
  - Eye pain [Recovered/Resolved]
  - Visual impairment [Recovering/Resolving]
  - Eye infection [Recovered/Resolved]
  - Instillation site foreign body sensation [Unknown]

NARRATIVE: CASE EVENT DATE: 201702
